FAERS Safety Report 12692243 (Version 1)
Quarter: 2016Q3

REPORT INFORMATION
  Report Type: Spontaneous
  Country: US (occurrence: US)
  Receive Date: 20160828
  Receipt Date: 20160828
  Transmission Date: 20161109
  Serious: No
  Sender: FDA-Public Use
  Company Number: US-SHIRE-US201610825

PATIENT
  Age: 40 Year
  Sex: Female
  Weight: 72.11 kg

DRUGS (1)
  1. LIALDA [Suspect]
     Active Substance: MESALAMINE
     Indication: COLITIS
     Dosage: 2.4 G, 1X/DAY:QD
     Route: 048
     Dates: start: 201607, end: 20160814

REACTIONS (9)
  - Hair texture abnormal [Unknown]
  - Ear discomfort [Not Recovered/Not Resolved]
  - Headache [Not Recovered/Not Resolved]
  - Nervousness [Unknown]
  - Throat irritation [Not Recovered/Not Resolved]
  - Alopecia [Unknown]
  - Emotional disorder [Unknown]
  - Hypophagia [Not Recovered/Not Resolved]
  - Stress [Not Recovered/Not Resolved]

NARRATIVE: CASE EVENT DATE: 2016
